FAERS Safety Report 4391423-8 (Version None)
Quarter: 2004Q3

REPORT INFORMATION
  Report Type: 
  Country: None (occurrence: None)
  Receive Date: 20040707
  Receipt Date: 20030324
  Transmission Date: 20050211
  Serious: Yes (Disabling, Other)
  Sender: FDA-Public Use
  Company Number: NO-GLAXOSMITHKLINE-B0295775A

PATIENT
  Age: 45 Year
  Sex: Female

DRUGS (1)
  1. ZYBAN [Suspect]
     Route: 048
     Dates: start: 20020105, end: 20020216

REACTIONS (11)
  - APHASIA [None]
  - CEREBRAL ARTERITIS [None]
  - CEREBRAL HAEMORRHAGE [None]
  - COMPUTERISED TOMOGRAM ABNORMAL [None]
  - CONVULSION [None]
  - ELECTROENCEPHALOGRAM ABNORMAL [None]
  - GRAND MAL CONVULSION [None]
  - HEADACHE [None]
  - NAUSEA [None]
  - PERSONALITY CHANGE [None]
  - VOMITING [None]
